FAERS Safety Report 22333124 (Version 1)
Quarter: 2023Q2

REPORT INFORMATION
  Report Type: Spontaneous
  Country: US (occurrence: US)
  Receive Date: 20230517
  Receipt Date: 20230517
  Transmission Date: 20230722
  Serious: No
  Sender: FDA-Public Use
  Company Number: US-MYLANLABS-2023M1046998

PATIENT

DRUGS (1)
  1. CYCLOSPORINE [Suspect]
     Active Substance: CYCLOSPORINE
     Indication: Product used for unknown indication
     Dosage: UNK (0.5 MG IN 1 ML)
     Route: 047
     Dates: start: 2009, end: 202304

REACTIONS (7)
  - Pharyngeal swelling [Recovering/Resolving]
  - Throat irritation [Recovering/Resolving]
  - Sinus disorder [Recovering/Resolving]
  - Oral mucosal blistering [Recovering/Resolving]
  - Eye pruritus [Recovering/Resolving]
  - Dysgeusia [Recovering/Resolving]
  - Headache [Recovering/Resolving]
